FAERS Safety Report 10189932 (Version 2)
Quarter: 2014Q2

REPORT INFORMATION
  Report Type: Spontaneous
  Country: US (occurrence: US)
  Receive Date: 20140522
  Receipt Date: 20140522
  Transmission Date: 20141212
  Serious: No
  Sender: FDA-Public Use
  Company Number: US-ASTRAZENECA-2013SE74347

PATIENT
  Age: 35 Year
  Sex: Female
  Weight: 59 kg

DRUGS (5)
  1. PULMICORT FLEXHALER [Suspect]
     Indication: ASTHMA
     Dosage: 180MCG BID
     Route: 055
     Dates: start: 2008
  2. PULMICORT FLEXHALER [Suspect]
     Indication: ASTHMA
     Dosage: 2 PUFFS BID
     Route: 055
  3. PULMICORT FLEXHALER [Suspect]
     Indication: ASTHMA
     Dosage: 1 PUFF QD
     Route: 055
  4. LEVOTHYROXINE [Concomitant]
     Indication: HYPOTHYROIDISM
     Dosage: 88MCG DAILY
     Route: 048
     Dates: start: 2000
  5. ALBUTEROL [Concomitant]
     Indication: ASTHMA
     Dosage: PRN

REACTIONS (2)
  - Dyspnoea [Unknown]
  - Intentional product misuse [Unknown]
